FAERS Safety Report 9523910 (Version 1)
Quarter: 2013Q3

REPORT INFORMATION
  Report Type: Spontaneous
  Country: US (occurrence: None)
  Receive Date: 20130912
  Receipt Date: 20130912
  Transmission Date: 20140515
  Serious: Yes (Hospitalization, Other)
  Sender: FDA-Public Use
  Company Number: None

PATIENT
  Age: 59 Year
  Sex: Female

DRUGS (4)
  1. METHOTREXATE [Suspect]
     Indication: RHEUMATOID ARTHRITIS
     Dosage: UNK  UNK  ORAL
     Route: 048
  2. ENBREL [Suspect]
     Indication: RHEUMATOID ARTHRITIS
     Dosage: 50MG WEEKLY SC
     Route: 058
     Dates: start: 201204, end: 201208
  3. LEVOTHYROXINE [Concomitant]
  4. PREDNISONE [Concomitant]

REACTIONS (3)
  - Coma [None]
  - Malaise [None]
  - Drug ineffective [None]
